FAERS Safety Report 7214692-5 (Version None)
Quarter: 2011Q1

REPORT INFORMATION
  Report Type: 
  Country: None (occurrence: None)
  Receive Date: 20110107
  Receipt Date: 20091113
  Transmission Date: 20110831
  Serious: No
  Sender: FDA-Public Use
  Company Number: A0817240A

PATIENT
  Sex: Male

DRUGS (3)
  1. STATINS [Concomitant]
  2. UNSPECIFIED FIBRATE MEDICATION [Concomitant]
  3. LOVAZA [Suspect]
     Route: 048

REACTIONS (1)
  - NAUSEA [None]
